FAERS Safety Report 9167845 (Version 1)
Quarter: 2013Q1

REPORT INFORMATION
  Report Type: Spontaneous
  Country: GB (occurrence: None)
  Receive Date: 20130305
  Receipt Date: 20130305
  Transmission Date: 20140127
  Serious: Yes (Life-Threatening, Other)
  Sender: FDA-Public Use
  Company Number: AUR-APL-2013-01665

PATIENT
  Age: 71 Year
  Sex: Male
  Weight: 83.81 kg

DRUGS (2)
  1. RAMIPRIL [Suspect]
     Indication: HYPERTENSION
     Route: 048
     Dates: start: 20120709, end: 20120802
  2. RANITIDINE [Concomitant]

REACTIONS (4)
  - Depression [None]
  - Suicidal ideation [None]
  - Dyspnoea [None]
  - Throat tightness [None]
